FAERS Safety Report 18329243 (Version 1)
Quarter: 2020Q3

REPORT INFORMATION
  Report Type: Spontaneous
  Country: TW (occurrence: TW)
  Receive Date: 20200930
  Receipt Date: 20200930
  Transmission Date: 20201103
  Serious: Yes (Other)
  Sender: FDA-Public Use
  Company Number: TW-SA-2020SA263897

PATIENT

DRUGS (16)
  1. INSULIN GLARGINE [Suspect]
     Active Substance: INSULIN GLARGINE
     Dosage: 0.29 IU/KG, QD
     Route: 058
     Dates: start: 2015
  2. METFORMIN [Concomitant]
     Active Substance: METFORMIN HYDROCHLORIDE
     Indication: DIABETES MELLITUS
     Dosage: 1500 MG, QD
     Route: 048
  3. METFORMIN [Concomitant]
     Active Substance: METFORMIN HYDROCHLORIDE
     Dosage: 1700 MG, QD
     Route: 048
  4. INSULIN ASPART [Suspect]
     Active Substance: INSULIN ASPART
     Indication: DIABETES MELLITUS INADEQUATE CONTROL
     Dosage: 0.13 IU/KG, QD
     Route: 040
     Dates: start: 2015
  5. SITAGLIPTIN [Concomitant]
     Active Substance: SITAGLIPTIN
     Indication: DIABETES MELLITUS INADEQUATE CONTROL
     Dosage: 100 MG, QD
     Route: 048
  6. GLICLAZIDE MR [Concomitant]
     Active Substance: GLICLAZIDE
     Dosage: 120 MG
     Route: 048
  7. PIOGLITAZONE. [Concomitant]
     Active Substance: PIOGLITAZONE
     Dosage: 30 MG
     Route: 048
  8. INSULIN GLARGINE [Suspect]
     Active Substance: INSULIN GLARGINE
     Indication: DIABETES MELLITUS INADEQUATE CONTROL
     Dosage: 0.43 IU/KG, QD
     Route: 058
     Dates: start: 2015
  9. INSULIN DETEMIR [Suspect]
     Active Substance: INSULIN DETEMIR
     Indication: DIABETES MELLITUS INADEQUATE CONTROL
     Dosage: 0.17 IU/KG, QD
     Route: 040
     Dates: start: 2015
  10. METFORMIN [Concomitant]
     Active Substance: METFORMIN HYDROCHLORIDE
     Dosage: 1500 MG, QD
     Route: 048
  11. ACARBOSE. [Concomitant]
     Active Substance: ACARBOSE
     Indication: DIABETES MELLITUS INADEQUATE CONTROL
     Dosage: 200 MG, QD
     Route: 048
  12. NOVOMIX [Suspect]
     Active Substance: INSULIN ASPART
     Indication: DIABETES MELLITUS INADEQUATE CONTROL
     Dosage: 0.46 IU/KG, QD
  13. HUMALOG MIX75/25 [Suspect]
     Active Substance: INSULIN LISPRO
     Indication: DIABETES MELLITUS INADEQUATE CONTROL
     Dosage: 0.71 IU/KG, QD
     Dates: start: 2015
  14. METFORMIN [Concomitant]
     Active Substance: METFORMIN HYDROCHLORIDE
     Dosage: 2000 MG, QD
     Route: 048
  15. GLIMEPIRIDE. [Concomitant]
     Active Substance: GLIMEPIRIDE
     Indication: DIABETES MELLITUS INADEQUATE CONTROL
     Dosage: 8 MG, QD
     Route: 048
  16. GLICLAZIDE MR [Concomitant]
     Active Substance: GLICLAZIDE
     Dosage: 240 MG, QD
     Route: 048
     Dates: start: 2015

REACTIONS (4)
  - Diabetic ketoacidosis [Unknown]
  - Stiff person syndrome [Recovering/Resolving]
  - Muscle rigidity [Recovering/Resolving]
  - Treatment noncompliance [Unknown]
